FAERS Safety Report 18152788 (Version 1)
Quarter: 2020Q3

REPORT INFORMATION
  Report Type: Spontaneous
  Country: US (occurrence: US)
  Receive Date: 20200814
  Receipt Date: 20200814
  Transmission Date: 20201103
  Serious: No
  Sender: FDA-Public Use
  Company Number: US-MANNKIND CORPORATION-2019MK000148

PATIENT
  Sex: Female

DRUGS (7)
  1. TRESIBA [Concomitant]
     Active Substance: INSULIN DEGLUDEC
     Indication: TYPE 2 DIABETES MELLITUS
     Route: 058
  2. ATORVASTATIN CALCIUM. [Concomitant]
     Active Substance: ATORVASTATIN CALCIUM
     Indication: BLOOD CHOLESTEROL ABNORMAL
     Route: 048
  3. MAGNESIUM [Concomitant]
     Active Substance: MAGNESIUM
     Indication: MINERAL SUPPLEMENTATION
  4. AFREZZA [Suspect]
     Active Substance: INSULIN HUMAN
     Indication: TYPE 2 DIABETES MELLITUS
     Dates: start: 20191003, end: 20191007
  5. AFREZZA [Suspect]
     Active Substance: INSULIN HUMAN
     Dates: start: 20191003, end: 20191007
  6. AFREZZA [Suspect]
     Active Substance: INSULIN HUMAN
     Dates: start: 20191003, end: 20191007
  7. PANTOPRAZOLE [Concomitant]
     Active Substance: PANTOPRAZOLE
     Indication: DYSPEPSIA
     Route: 048

REACTIONS (1)
  - Blister [Not Recovered/Not Resolved]

NARRATIVE: CASE EVENT DATE: 20191003
